FAERS Safety Report 7186645-7 (Version None)
Quarter: 2010Q4

REPORT INFORMATION
  Report Type: 
  Country: None (occurrence: None)
  Receive Date: 20101222
  Receipt Date: 20100624
  Transmission Date: 20110411
  Serious: No
  Sender: FDA-Public Use
  Company Number: US-AMGEN-TCS417310

PATIENT

DRUGS (6)
  1. ENBREL [Suspect]
     Indication: PSORIASIS
     Dosage: 50 MG, QWK
     Route: 058
     Dates: start: 20090109
  2. VALSARTAN [Concomitant]
  3. ESTROGENS CONJUGATED [Concomitant]
  4. METAXALONE [Concomitant]
  5. METHADONE [Concomitant]
  6. ZOLPIDEM [Concomitant]

REACTIONS (1)
  - PHOTOSENSITIVITY REACTION [None]
